APPROVED DRUG PRODUCT: AXOTAL
Active Ingredient: ASPIRIN; BUTALBITAL
Strength: 650MG;50MG
Dosage Form/Route: TABLET;ORAL
Application: A088305 | Product #001
Applicant: SAVAGE LABORATORIES INC DIV ALTANA INC
Approved: Oct 13, 1983 | RLD: No | RS: No | Type: DISCN